FAERS Safety Report 6816751-5 (Version None)
Quarter: 2010Q3

REPORT INFORMATION
  Report Type: 
  Country: None (occurrence: None)
  Receive Date: 20100706
  Receipt Date: 20100701
  Transmission Date: 20110219
  Serious: Yes (Life-Threatening)
  Sender: FDA-Public Use
  Company Number: IT-JNJFOC-20100605932

PATIENT
  Sex: Male

DRUGS (11)
  1. SERENASE [Suspect]
     Indication: SEDATION
     Route: 030
  2. CLEXANE [Suspect]
     Indication: THROMBOSIS PROPHYLAXIS
     Route: 058
  3. NORVASC [Suspect]
     Indication: HYPERTENSION
     Route: 048
  4. DILTIAZEM HCL [Concomitant]
     Indication: HYPERTENSION
     Route: 065
  5. LORAZEPAM [Concomitant]
     Indication: SEDATION
     Route: 065
  6. TAZOCIN [Concomitant]
     Indication: LUNG INFECTION
     Route: 042
  7. PARIET [Concomitant]
     Indication: PROPHYLAXIS
     Route: 048
  8. URBASON [Concomitant]
     Indication: ANTIINFLAMMATORY THERAPY
     Route: 050
  9. BRONCOVALEAS [Concomitant]
     Indication: BRONCHOPULMONARY DISEASE
     Route: 065
  10. OXIVENT [Concomitant]
     Indication: BRONCHOPULMONARY DISEASE
     Route: 065
  11. BECLOMETHASONE DIPROPIONATE [Concomitant]
     Indication: BRONCHOPULMONARY DISEASE
     Route: 065

REACTIONS (2)
  - OFF LABEL USE [None]
  - THROMBOCYTOPENIA [None]
